FAERS Safety Report 6744452-0 (Version None)
Quarter: 2010Q2

REPORT INFORMATION
  Report Type: 
  Country: None (occurrence: None)
  Receive Date: 20100527
  Receipt Date: 20100518
  Transmission Date: 20101027
  Serious: Yes (Other)
  Sender: FDA-Public Use
  Company Number: US-PFIZER INC-2010062890

PATIENT
  Sex: Female
  Weight: 63 kg

DRUGS (9)
  1. AROMASIN [Suspect]
     Indication: BREAST CANCER
     Dosage: 25 MG, 1X/DAY
     Route: 048
     Dates: start: 20080101
  2. CRESTOR [Suspect]
     Indication: BLOOD CHOLESTEROL INCREASED
     Dosage: UNK
     Route: 048
     Dates: start: 20080101
  3. FEMARA [Suspect]
     Indication: BREAST CANCER
     Dosage: UNK
     Dates: start: 20070401
  4. MIRAPEX [Concomitant]
     Indication: RESTLESS LEGS SYNDROME
     Dosage: 0.5 MG, UNK
     Route: 048
     Dates: start: 20080101
  5. CELEBREX [Concomitant]
     Indication: ARTHRITIS
     Dosage: 200 MG, 1X/DAY
     Route: 048
     Dates: start: 20080101
  6. NIASPAN [Concomitant]
     Indication: BLOOD CHOLESTEROL INCREASED
     Dosage: 500 MG, 1X/DAY
     Route: 048
     Dates: start: 20100101
  7. VESICARE [Concomitant]
     Indication: POLLAKIURIA
     Dosage: 10 MG, 1X/DAY
     Route: 048
     Dates: start: 20070101
  8. CALCIUM [Concomitant]
     Indication: OSTEOPENIA
     Dosage: UNK
  9. ZOMETA [Concomitant]
     Indication: OSTEOPOROSIS
     Dosage: 1 MG, 2X/YEAR

REACTIONS (5)
  - ARTHRALGIA [None]
  - GAIT DISTURBANCE [None]
  - JOINT STIFFNESS [None]
  - MYALGIA [None]
  - PAIN IN EXTREMITY [None]
